FAERS Safety Report 5346578-5 (Version None)
Quarter: 2007Q2

REPORT INFORMATION
  Report Type: 
  Country: None (occurrence: None)
  Receive Date: 20070430
  Receipt Date: 20070312
  Transmission Date: 20071010
  Serious: No
  Sender: FDA-Public Use
  Company Number: 261585

PATIENT
  Age: 67 Year
  Sex: Female
  Weight: 77.1 kg

DRUGS (1)
  1. LEVEMIR [Suspect]
     Indication: DIABETES MELLITUS NON-INSULIN-DEPENDENT
     Dosage: 6 LU, QD, SUBCUTANEOUS
     Route: 058
     Dates: start: 20070219

REACTIONS (2)
  - BLOOD GLUCOSE INCREASED [None]
  - RENAL PAIN [None]
